FAERS Safety Report 4708301-4 (Version None)
Quarter: 2005Q2

REPORT INFORMATION
  Report Type: 
  Country: None (occurrence: None)
  Receive Date: 20050630
  Receipt Date: 20050621
  Transmission Date: 20051028
  Serious: Yes (Hospitalization)
  Sender: FDA-Public Use
  Company Number: GAM-034-05-USA

PATIENT
  Sex: Female
  Weight: 45 kg

DRUGS (1)
  1. OCTAGAM [Suspect]
     Indication: DERMATOMYOSITIS
     Dosage: 50 GM QD IV
     Route: 042
     Dates: start: 20050607

REACTIONS (11)
  - ANXIETY [None]
  - BLOOD PRESSURE DIASTOLIC DECREASED [None]
  - ERYTHEMA [None]
  - EYE SWELLING [None]
  - FEELING COLD [None]
  - OCULAR HYPERAEMIA [None]
  - OEDEMA PERIPHERAL [None]
  - PRURITUS [None]
  - SWELLING FACE [None]
  - TREMOR [None]
  - URTICARIA [None]
